FAERS Safety Report 7651350-7 (Version None)
Quarter: 2011Q3

REPORT INFORMATION
  Report Type: 
  Country: None (occurrence: None)
  Receive Date: 20110802
  Receipt Date: 20110720
  Transmission Date: 20111222
  Serious: Yes (Hospitalization, Other)
  Sender: FDA-Public Use
  Company Number: PHEH2010US03416

PATIENT
  Sex: Female

DRUGS (22)
  1. AREDIA [Suspect]
  2. ZOMETA [Suspect]
     Dates: end: 20060701
  3. CARVEDIOL [Concomitant]
  4. ZOFRAN [Concomitant]
     Dosage: 10 MG, Q8H
     Route: 042
  5. DILAUDID [Concomitant]
  6. NEUTRA-PHOS [Concomitant]
  7. DETROL [Concomitant]
     Route: 048
  8. DOXYCYCLINE [Concomitant]
  9. VASOTEC [Concomitant]
     Dosage: 2.5 MG, DAILY
     Route: 048
  10. BENADRYL [Concomitant]
     Dosage: 25 MG, Q4H
     Route: 048
  11. FEMARA [Concomitant]
  12. LISINOPRIL [Concomitant]
     Route: 048
  13. CLINDAMYCIN [Concomitant]
  14. TORADOL [Concomitant]
     Route: 042
  15. REGLAN [Concomitant]
     Dosage: 10 MG, Q6H PRN
     Route: 042
  16. BETADINE [Concomitant]
     Route: 061
  17. TYLENOL-500 [Concomitant]
     Dosage: 500 MG, BID
     Route: 048
  18. NARCAN [Concomitant]
  19. DARVOCET-N 50 [Concomitant]
  20. PHENERGAN HCL [Concomitant]
     Dosage: 25 MG, Q6H
  21. ASPIRIN [Concomitant]
     Dosage: 81 MG, DAILY
     Route: 048
  22. AMBIEN [Concomitant]

REACTIONS (81)
  - OEDEMA PERIPHERAL [None]
  - LUNG NEOPLASM [None]
  - CARDIAC PSEUDOANEURYSM [None]
  - VAGINAL EROSION [None]
  - COR PULMONALE CHRONIC [None]
  - VENTRICULAR TACHYCARDIA [None]
  - SINUSITIS [None]
  - INJURY [None]
  - MUSCULOSKELETAL PAIN [None]
  - VERTEBRAL FORAMINAL STENOSIS [None]
  - SCAPULA FRACTURE [None]
  - DERMAL CYST [None]
  - RENAL CYST [None]
  - NORMAL PRESSURE HYDROCEPHALUS [None]
  - RENAL CYST HAEMORRHAGE [None]
  - PARAESTHESIA [None]
  - PELVIC PAIN [None]
  - ANAEMIA [None]
  - TRANSIENT ISCHAEMIC ATTACK [None]
  - MYOCARDIAL ISCHAEMIA [None]
  - HYPERGLYCAEMIA [None]
  - CEREBRAL ATROPHY [None]
  - ANXIETY [None]
  - METASTASES TO BONE [None]
  - EXOSTOSIS [None]
  - BURSITIS [None]
  - BONE LESION [None]
  - ATTENTION DEFICIT/HYPERACTIVITY DISORDER [None]
  - MITRAL VALVE INCOMPETENCE [None]
  - RECTOCELE [None]
  - CERVICITIS [None]
  - ASTHENIA [None]
  - OSTEONECROSIS OF JAW [None]
  - ATELECTASIS [None]
  - NERVE COMPRESSION [None]
  - EMPHYSEMA [None]
  - BRONCHIECTASIS [None]
  - DIVERTICULUM INTESTINAL [None]
  - BLADDER PROLAPSE [None]
  - INCONTINENCE [None]
  - CYSTOCELE [None]
  - DYSPNOEA [None]
  - ARTERIOSCLEROSIS [None]
  - PAIN [None]
  - ROTATOR CUFF SYNDROME [None]
  - PATHOLOGICAL FRACTURE [None]
  - INTERVERTEBRAL DISC DEGENERATION [None]
  - SYNOVIAL CYST [None]
  - EJECTION FRACTION DECREASED [None]
  - HEPATIC STEATOSIS [None]
  - AZOTAEMIA [None]
  - PSEUDOMONAS TEST POSITIVE [None]
  - NOCTURIA [None]
  - COUGH [None]
  - CONGENITAL CYSTIC KIDNEY DISEASE [None]
  - CARDIOMEGALY [None]
  - PULMONARY FIBROSIS [None]
  - OVARIAN CYST [None]
  - RIGHT VENTRICULAR HYPERTROPHY [None]
  - ATAXIA [None]
  - ARTHRITIS [None]
  - HYPOAESTHESIA [None]
  - SPINAL COMPRESSION FRACTURE [None]
  - UTERINE PROLAPSE [None]
  - FATIGUE [None]
  - CARDIOMYOPATHY [None]
  - CARDIAC FAILURE CONGESTIVE [None]
  - URINARY TRACT INFECTION [None]
  - OSTEOPOROSIS [None]
  - BUNDLE BRANCH BLOCK [None]
  - LEFT VENTRICULAR DYSFUNCTION [None]
  - LEUKOCYTOSIS [None]
  - ANHEDONIA [None]
  - OSTEOPENIA [None]
  - CYST [None]
  - OSTEOARTHRITIS [None]
  - DEMENTIA [None]
  - GAIT DISTURBANCE [None]
  - VULVOVAGINITIS [None]
  - LABIA ENLARGED [None]
  - UTERINE LEIOMYOMA [None]
